FAERS Safety Report 21862829 (Version 1)
Quarter: 2023Q1

REPORT INFORMATION
  Report Type: Spontaneous
  Country: US (occurrence: US)
  Receive Date: 20230114
  Receipt Date: 20230114
  Transmission Date: 20230417
  Serious: No
  Sender: FDA-Public Use
  Company Number: US-drreddys-SPO/USA/22/0158378

PATIENT
  Age: 65 Year

DRUGS (1)
  1. LENALIDOMIDE [Suspect]
     Active Substance: LENALIDOMIDE
     Indication: Plasma cell myeloma
     Dosage: FOR 21 DAYS, THEN 7 DAYS OFF
     Route: 048
     Dates: start: 20220926

REACTIONS (2)
  - Cough [Unknown]
  - Hypersensitivity [Unknown]
